FAERS Safety Report 23120710 (Version 1)
Quarter: 2023Q4

REPORT INFORMATION
  Report Type: Spontaneous
  Country: US (occurrence: US)
  Receive Date: 20231029
  Receipt Date: 20231029
  Transmission Date: 20240110
  Serious: No
  Sender: FDA-Public Use
  Company Number: US-TEVA-2023-US-2937399

PATIENT
  Sex: Female

DRUGS (1)
  1. LORAZEPAM [Suspect]
     Active Substance: LORAZEPAM
     Indication: Anxiety
     Dosage: FORM STRENGTH : 1 MG, HALF TABLET IN THE MORNING AND HALF IN THE AFTERNOON
     Route: 065
     Dates: start: 2006

REACTIONS (1)
  - Drug ineffective [Unknown]
